FAERS Safety Report 18463224 (Version 2)
Quarter: 2022Q1

REPORT INFORMATION
  Report Type: Report from Study
  Country: RO (occurrence: RO)
  Receive Date: 20201104
  Receipt Date: 20220107
  Transmission Date: 20220423
  Serious: Yes (Hospitalization, Other)
  Sender: FDA-Public Use
  Company Number: RO-VIIV HEALTHCARE LIMITED-RO2020EME210033

PATIENT
  Age: 24 Year
  Sex: Female

DRUGS (5)
  1. TIVICAY [Suspect]
     Active Substance: DOLUTEGRAVIR SODIUM
     Indication: HIV infection CDC category C
     Dosage: UNK
     Dates: start: 2019
  2. TENOFOVIR DISOPROXIL FUMARATE [Suspect]
     Active Substance: TENOFOVIR DISOPROXIL FUMARATE
     Indication: HIV infection CDC category C
     Dosage: UNK
     Dates: start: 2019
  3. EMTRIVA [Suspect]
     Active Substance: EMTRICITABINE
     Indication: HIV infection CDC category C
     Dosage: UNK
     Dates: start: 2019
  4. OFLOXACIN [Concomitant]
     Active Substance: OFLOXACIN
     Indication: Extrapulmonary tuberculosis
     Dosage: UNK
     Dates: start: 201909
  5. ETHAMBUTOL+ ISONIAZID + RIFAMPICIN [Concomitant]
     Indication: Extrapulmonary tuberculosis
     Dosage: UNK
     Dates: start: 201909

REACTIONS (7)
  - Intervertebral disc protrusion [Recovering/Resolving]
  - Back pain [Unknown]
  - Pain [Unknown]
  - Staphylococcal bacteraemia [Unknown]
  - Neurological symptom [Recovering/Resolving]
  - Toxoplasmosis [Unknown]
  - Cytomegalovirus infection [Unknown]

NARRATIVE: CASE EVENT DATE: 20190101
